FAERS Safety Report 5407323-8 (Version None)
Quarter: 2007Q3

REPORT INFORMATION
  Report Type: 
  Country: None (occurrence: None)
  Receive Date: 20070807
  Receipt Date: 20070726
  Transmission Date: 20080115
  Serious: Yes (Hospitalization, Other)
  Sender: FDA-Public Use
  Company Number: US-ROCHE-508751

PATIENT
  Age: 32 Year
  Sex: Female

DRUGS (2)
  1. ACCUTANE [Suspect]
     Indication: ACNE
     Route: 065
  2. BIRTH CONTROL PILLS [Suspect]
     Indication: DRUG USE FOR UNKNOWN INDICATION
     Route: 065

REACTIONS (2)
  - HEPATIC MASS [None]
  - PULMONARY EMBOLISM [None]
